FAERS Safety Report 7094473-6 (Version None)
Quarter: 2010Q4

REPORT INFORMATION
  Report Type: 
  Country: None (occurrence: None)
  Receive Date: 20101110
  Receipt Date: 20101105
  Transmission Date: 20110411
  Serious: Yes (Death)
  Sender: FDA-Public Use
  Company Number: BR-SANOFI-AVENTIS-2010SA067718

PATIENT

DRUGS (1)
  1. CLEXANE SYRINGES [Suspect]
     Indication: PROPHYLAXIS OF ABORTION
     Route: 064
     Dates: start: 20090811

REACTIONS (4)
  - DEATH [None]
  - DEATH NEONATAL [None]
  - DRUG EXPOSURE DURING PREGNANCY [None]
  - MATERNAL DRUGS AFFECTING FOETUS [None]
